FAERS Safety Report 7127846-3 (Version None)
Quarter: 2010Q4

REPORT INFORMATION
  Report Type: 
  Country: None (occurrence: None)
  Receive Date: 20101029
  Receipt Date: 20100713
  Transmission Date: 20110411
  Serious: No
  Sender: FDA-Public Use
  Company Number: US-003169

PATIENT
  Age: 48 Year
  Sex: Male
  Weight: 101.1521 kg

DRUGS (1)
  1. FIRMAGON [Suspect]
     Indication: PROSTATE CANCER
     Dosage: 240 MG QD SUBCUTANEOUS
     Route: 058
     Dates: start: 20100712, end: 20100712

REACTIONS (1)
  - DRUG ADMINISTRATION ERROR [None]
